FAERS Safety Report 19912774 (Version 1)
Quarter: 2021Q4

REPORT INFORMATION
  Report Type: Spontaneous
  Country: US (occurrence: US)
  Receive Date: 20211004
  Receipt Date: 20211004
  Transmission Date: 20220303
  Serious: No
  Sender: FDA-Public Use
  Company Number: None

PATIENT
  Age: 42 Year
  Sex: Female
  Weight: 69.75 kg

DRUGS (16)
  1. IVERMECTIN [Suspect]
     Active Substance: IVERMECTIN
     Indication: COVID-19
     Dosage: ?          QUANTITY:5 TABLET(S);
     Route: 048
     Dates: start: 20210928, end: 20211002
  2. DOXYCYCLINE [Concomitant]
     Active Substance: DOXYCYCLINE
  3. ASMANEX [Concomitant]
     Active Substance: MOMETASONE FUROATE
  4. DIFLUCAN [Concomitant]
     Active Substance: FLUCONAZOLE
  5. NYSTATIN [Concomitant]
     Active Substance: NYSTATIN
  6. DECADRON [Concomitant]
     Active Substance: DEXAMETHASONE
  7. MUCINEX [Concomitant]
     Active Substance: GUAIFENESIN
  8. PSEUDOEPHEDRINE. [Concomitant]
     Active Substance: PSEUDOEPHEDRINE HYDROCHLORIDE
  9. PEPCID [Concomitant]
     Active Substance: FAMOTIDINE
  10. ASPIRIN [Concomitant]
     Active Substance: ASPIRIN
  11. VITAMIN D3 [Concomitant]
     Active Substance: CHOLECALCIFEROL
  12. VITAMIN C [Concomitant]
     Active Substance: ASCORBIC ACID
  13. CALCIUM [Concomitant]
     Active Substance: CALCIUM
  14. ZINC [Concomitant]
     Active Substance: ZINC
  15. QUERCETIN [Concomitant]
     Active Substance: QUERCETIN
  16. TYLENOL [Concomitant]
     Active Substance: ACETAMINOPHEN

REACTIONS (2)
  - Dizziness [None]
  - Dizziness [None]

NARRATIVE: CASE EVENT DATE: 20211001
